FAERS Safety Report 13990308 (Version 2)
Quarter: 2017Q4

REPORT INFORMATION
  Report Type: Spontaneous
  Country: CA (occurrence: CA)
  Receive Date: 20170920
  Receipt Date: 20171016
  Transmission Date: 20180321
  Serious: Yes (Death, Hospitalization, Other)
  Sender: FDA-Public Use
  Company Number: CA-APOTEX-2014AP006427

PATIENT
  Age: 61 Year
  Sex: Female

DRUGS (14)
  1. APO-PREDNISONE [Suspect]
     Active Substance: PREDNISONE
     Indication: PYODERMA GANGRENOSUM
     Dosage: 50-70MG DAILY
     Route: 048
  2. CARBOXYMETHYLCELLULOSE [Concomitant]
     Active Substance: CARBOXYMETHYLCELLULOSE
     Indication: PRODUCT USED FOR UNKNOWN INDICATION
     Route: 065
  3. HYDROCORTISONE. [Suspect]
     Active Substance: HYDROCORTISONE
     Indication: PYODERMA GANGRENOSUM
     Dosage: 50 MG, EVERY 6 HOURS
     Route: 042
  4. APO-AZATHIOPRINE TABLETS [Suspect]
     Active Substance: AZATHIOPRINE
     Indication: MYASTHENIA GRAVIS
     Dosage: 100 MG, BID
     Route: 048
  5. IMMUNE GLOBULIN [Suspect]
     Active Substance: HUMAN IMMUNOGLOBULIN G
     Indication: PYODERMA GANGRENOSUM
     Dosage: 1 G/KG/DAY; RECEIVED 2 DOSES
     Route: 042
  6. FLOVENT HFA [Suspect]
     Active Substance: FLUTICASONE PROPIONATE
     Indication: PYODERMA GANGRENOSUM
     Dosage: 250 ?G, UNK
     Route: 061
  7. INTRASITE GEL [Concomitant]
     Indication: WOUND
     Dosage: UNK
     Route: 061
  8. ARESTIN [Suspect]
     Active Substance: MINOCYCLINE HYDROCHLORIDE
     Indication: PYODERMA GANGRENOSUM
     Dosage: 100 MG, BID
     Route: 048
  9. MINOCYCLINE [Suspect]
     Active Substance: MINOCYCLINE\MINOCYCLINE HYDROCHLORIDE
     Indication: PYODERMA GANGRENOSUM
     Dosage: 100 MG, BID
     Route: 048
  10. COLCHICINE. [Suspect]
     Active Substance: COLCHICINE
     Indication: PYODERMA GANGRENOSUM
     Dosage: 0.6 MG, BID
     Route: 048
  11. PREDNISOLONE. [Suspect]
     Active Substance: PREDNISOLONE
     Indication: PYODERMA GANGRENOSUM
     Dosage: 70 MG, DAILY
     Route: 048
  12. CICLOSPORIN [Suspect]
     Active Substance: CYCLOSPORINE
     Indication: PYODERMA GANGRENOSUM
     Dosage: 400 MG, DAILY
     Route: 042
  13. APO-AZATHIOPRINE TABLETS [Suspect]
     Active Substance: AZATHIOPRINE
     Indication: PYODERMA GANGRENOSUM
     Dosage: 150 MG, BID
     Route: 048
  14. APO-FLUTICASONE [Suspect]
     Active Substance: FLUTICASONE PROPIONATE
     Indication: PYODERMA GANGRENOSUM
     Route: 061

REACTIONS (9)
  - Hepatic failure [Fatal]
  - Pancytopenia [Fatal]
  - Treatment failure [Fatal]
  - Off label use [Fatal]
  - Enterococcal sepsis [Fatal]
  - Pulmonary mass [Fatal]
  - Septic shock [Fatal]
  - Disseminated intravascular coagulation [Fatal]
  - Urinary tract infection [Fatal]
